FAERS Safety Report 10087974 (Version 2)
Quarter: 2014Q2

REPORT INFORMATION
  Report Type: Spontaneous
  Country: CN (occurrence: CN)
  Receive Date: 20140419
  Receipt Date: 20140422
  Transmission Date: 20141212
  Serious: Yes (Hospitalization, Other)
  Sender: FDA-Public Use
  Company Number: CN-MERCK-1404CHN010220

PATIENT
  Age: 86 Year
  Sex: Male
  Weight: 60 kg

DRUGS (2)
  1. JANUVIA [Suspect]
     Indication: DIABETES MELLITUS
     Dosage: 100 MG, QD
     Route: 048
     Dates: start: 20130501, end: 20130602
  2. FU LAI DI [Suspect]
     Indication: DIABETES MELLITUS
     Dosage: 1 MG, TID
     Route: 048
     Dates: start: 20130501, end: 20130602

REACTIONS (1)
  - Hypoglycaemia [Recovered/Resolved]
